FAERS Safety Report 7532767-8 (Version None)
Quarter: 2011Q2

REPORT INFORMATION
  Report Type: 
  Country: None (occurrence: None)
  Receive Date: 20110608
  Receipt Date: 20110531
  Transmission Date: 20111010
  Serious: Yes (Death, Disabling)
  Sender: FDA-Public Use
  Company Number: B0692960A

PATIENT
  Age: 23 Year
  Sex: Male
  Weight: 66 kg

DRUGS (16)
  1. NEUTROGIN [Concomitant]
     Dates: start: 20090805, end: 20090808
  2. MAGNESIUM SULFATE [Concomitant]
     Dosage: 990MG PER DAY
     Route: 048
     Dates: start: 20090728, end: 20090831
  3. FENTANYL [Concomitant]
     Dosage: 4.2MG THREE TIMES PER DAY
     Route: 048
     Dates: start: 20090817, end: 20090831
  4. LOPERAMIDE HCL [Concomitant]
     Dosage: 1MG PER DAY
     Route: 048
     Dates: start: 20090823, end: 20090831
  5. PROGRAF [Suspect]
     Indication: IMMUNOSUPPRESSION
     Dosage: .03MGK PER DAY
     Route: 065
     Dates: start: 20090730, end: 20090817
  6. ALLOPURINOL [Concomitant]
     Dosage: 200MG PER DAY
     Route: 048
     Dates: start: 20090727, end: 20090831
  7. ACIROVEC [Concomitant]
     Dosage: 1000MG PER DAY
     Route: 048
     Dates: start: 20090727, end: 20090831
  8. ADALAT [Concomitant]
     Dosage: 10MG PER DAY
     Route: 048
     Dates: start: 20090825, end: 20090831
  9. GABAPENTIN [Concomitant]
     Dosage: 400MG PER DAY
     Route: 048
     Dates: start: 20090818, end: 20090831
  10. BROCIN [Concomitant]
     Dosage: 12ML PER DAY
     Route: 048
     Dates: start: 20090809, end: 20090831
  11. URSO 250 [Concomitant]
     Dosage: 600MG PER DAY
     Route: 048
     Dates: start: 20090727, end: 20090831
  12. ALKERAN [Suspect]
     Indication: CORD BLOOD TRANSPLANT THERAPY
     Dosage: 245MG PER DAY
     Route: 042
     Dates: start: 20090727, end: 20090727
  13. FLUCONAZOLE [Concomitant]
     Dosage: 200MG PER DAY
     Route: 048
     Dates: start: 20090727, end: 20090831
  14. LANSOPRAZOLE [Concomitant]
     Dosage: 30MG PER DAY
     Route: 048
     Dates: start: 20090727, end: 20090831
  15. WINTERMIN [Concomitant]
     Dosage: 30MG PER DAY
     Route: 048
     Dates: start: 20090806, end: 20090831
  16. LEVOFLOXACIN [Concomitant]
     Dosage: 300MG PER DAY
     Route: 048
     Dates: start: 20090727, end: 20090831

REACTIONS (5)
  - TOXIC ENCEPHALOPATHY [None]
  - MUSCLE SPASMS [None]
  - HYPERTENSION [None]
  - VENOOCCLUSIVE LIVER DISEASE [None]
  - RENAL FAILURE ACUTE [None]
